FAERS Safety Report 8301687-3 (Version None)
Quarter: 2012Q2

REPORT INFORMATION
  Report Type: 
  Country: None (occurrence: None)
  Receive Date: 20120420
  Receipt Date: 20120409
  Transmission Date: 20120825
  Serious: Yes (Hospitalization, Other)
  Sender: FDA-Public Use
  Company Number: JP-VERTEX PHARMACEUTICALS INC.-AE-2012-005300

PATIENT
  Age: 66 Year
  Sex: Male

DRUGS (29)
  1. RIBAVIRIN [Concomitant]
     Indication: HEPATITIS C
     Route: 048
     Dates: start: 20120215, end: 20120221
  2. PEGASYS [Concomitant]
     Indication: HEPATITIS C
     Route: 058
     Dates: start: 20120215, end: 20120215
  3. KENEI G [Concomitant]
     Route: 054
     Dates: start: 20120222, end: 20120228
  4. SOLITA-T NO.1 [Concomitant]
     Dates: start: 20120227, end: 20120330
  5. ZADITEN [Concomitant]
     Route: 031
     Dates: start: 20120314, end: 20120320
  6. RIBAVIRIN [Concomitant]
     Route: 048
     Dates: start: 20120222, end: 20120301
  7. PLAVIX [Concomitant]
     Route: 048
     Dates: start: 20120210, end: 20120405
  8. BIO-THREE [Concomitant]
     Route: 048
     Dates: start: 20120210, end: 20120211
  9. ZOLPIDEM [Concomitant]
     Route: 048
     Dates: start: 20120216, end: 20120229
  10. SOLITA-T NO. 3 [Concomitant]
     Dates: start: 20120226, end: 20120227
  11. DOGMATYL [Concomitant]
     Route: 048
     Dates: start: 20120310, end: 20120328
  12. LOXONIN [Concomitant]
     Route: 061
     Dates: start: 20120322, end: 20120328
  13. PEGINTERFERON ALFA-2B [Concomitant]
     Indication: HEPATITIS C
     Dates: start: 20120215, end: 20120323
  14. EXFORGE [Concomitant]
     Route: 048
     Dates: start: 20120210, end: 20120222
  15. TELAVIC (TELAPREVIR) [Suspect]
     Indication: HEPATITIS C
     Route: 048
     Dates: start: 20120215, end: 20120221
  16. RIBAVIRIN [Concomitant]
     Route: 048
     Dates: start: 20120302, end: 20120325
  17. PURSENNID [Concomitant]
     Route: 048
     Dates: start: 20120215, end: 20120228
  18. ACETAMINOPHEN [Concomitant]
     Route: 048
     Dates: start: 20120224, end: 20120308
  19. LENDORMIN [Concomitant]
     Route: 048
     Dates: start: 20120323, end: 20120405
  20. TELAVIC (TELAPREVIR) [Suspect]
     Route: 048
     Dates: start: 20120222, end: 20120325
  21. FAMOTIDINE [Concomitant]
     Route: 048
     Dates: start: 20120210, end: 20120405
  22. GASMOTIN [Concomitant]
     Route: 048
     Dates: start: 20120219, end: 20120405
  23. ATARAX [Concomitant]
     Route: 051
     Dates: start: 20120324, end: 20120324
  24. AMLODIPINE BESYLATE [Concomitant]
     Route: 048
  25. ASPIRIN [Concomitant]
     Route: 048
     Dates: start: 20120210, end: 20120405
  26. BISOPROLOL FUMARATE [Concomitant]
     Route: 048
     Dates: start: 20120210, end: 20120405
  27. ACETAMINOPHEN [Concomitant]
     Route: 048
     Dates: start: 20120405, end: 20120405
  28. HYALEIN [Concomitant]
     Route: 031
     Dates: start: 20120314, end: 20120320
  29. ADOFEED [Concomitant]
     Route: 061
     Dates: start: 20120316, end: 20120325

REACTIONS (4)
  - HYPERURICAEMIA [None]
  - RENAL DISORDER [None]
  - DEPRESSION [None]
  - ANAEMIA [None]
